FAERS Safety Report 8033558-4 (Version None)
Quarter: 2012Q1

REPORT INFORMATION
  Report Type: 
  Country: None (occurrence: None)
  Receive Date: 20120110
  Receipt Date: 20120104
  Transmission Date: 20120608
  Serious: Yes (Death, Other)
  Sender: FDA-Public Use
  Company Number: US-ELI_LILLY_AND_COMPANY-US201201001370

PATIENT

DRUGS (3)
  1. OXALIPLATIN [Concomitant]
     Dosage: 100 MG/M2, GIVEN ON DAY TWO OF CYCLE.
  2. BEVACIZUMAB [Concomitant]
     Dosage: 10 MG/KG, GIVEN ON DAY ONE AND TWO OF EACH TWO WEEK CYCLE.
  3. GEMCITABINE HYDROCHLORIDE [Suspect]
     Indication: PANCREATIC CARCINOMA
     Dosage: 1000 MG/M2, ON DAY ONE OF CYCLE
     Route: 042

REACTIONS (2)
  - DEATH [None]
  - CEREBROVASCULAR ACCIDENT [None]
